FAERS Safety Report 25462188 (Version 1)
Quarter: 2025Q2

REPORT INFORMATION
  Report Type: Spontaneous
  Country: US (occurrence: None)
  Receive Date: 20250619
  Receipt Date: 20250619
  Transmission Date: 20250716
  Serious: No
  Sender: FDA-CTU
  Company Number: None

PATIENT
  Age: 77 Year
  Sex: Male
  Weight: 101.25 kg

DRUGS (17)
  1. ERYTHROMYCIN [Suspect]
     Active Substance: ERYTHROMYCIN
     Indication: Infection prophylaxis
     Dosage: OTHER QUANTITY : 3.5 GM;?FREQUENCY : 3 TIMES A DAY;?
     Route: 061
     Dates: start: 20250617, end: 20250619
  2. TIMOLOL MALEATE [Concomitant]
     Active Substance: TIMOLOL MALEATE
  3. LOSARTAN [Concomitant]
     Active Substance: LOSARTAN
  4. DULoxetine (Cymbalta) EC/DR 30 mg [Concomitant]
  5. ATORVASTATIN [Concomitant]
     Active Substance: ATORVASTATIN
  6. KETOCONAZOLE [Concomitant]
     Active Substance: KETOCONAZOLE
  7. Triamcinolone Acetonide Cream USP, 0.1% [Concomitant]
  8. BETAMETHASONE DP 0.05% CRM [Concomitant]
  9. clobetasol 0.05% external [Concomitant]
  10. MECLIZINE HYDROCHLORIDE [Concomitant]
     Active Substance: MECLIZINE HYDROCHLORIDE
  11. ACNE WASH [Concomitant]
     Active Substance: SALICYLIC ACID
  12. 10% BENZOYL PEROXIDE ACNE MEDICATION [Concomitant]
     Active Substance: BENZOYL PEROXIDE
  13. 10% BENZOYL PEROXIDE ACNE MEDICATION [Concomitant]
     Active Substance: BENZOYL PEROXIDE
  14. Fexafenadrine Hydrochloride(Allegra) [Concomitant]
  15. ClearLax/MiraLax [Concomitant]
  16. Magnesium (chelated) [Concomitant]
  17. Neuriva Brain +Eye [Concomitant]

REACTIONS (3)
  - Eye pruritus [None]
  - Pruritus [None]
  - Pruritus [None]

NARRATIVE: CASE EVENT DATE: 20250619
